FAERS Safety Report 10140771 (Version 1)
Quarter: 2014Q2

REPORT INFORMATION
  Report Type: Spontaneous
  Country: US (occurrence: US)
  Receive Date: 20140429
  Receipt Date: 20140429
  Transmission Date: 20141212
  Serious: Yes (Hospitalization)
  Sender: FDA-Public Use
  Company Number: US-BAYER-2014-062425

PATIENT
  Age: 26 Year
  Sex: Female

DRUGS (6)
  1. YAZ [Suspect]
     Dosage: UNK
     Dates: start: 2002, end: 201112
  2. YASMIN [Suspect]
     Dosage: UNK
     Dates: start: 2002, end: 201112
  3. BEYAZ [Suspect]
     Dosage: UNK
     Dates: start: 2002, end: 201112
  4. SAFYRAL [Suspect]
     Dosage: UNK
     Dates: start: 2002, end: 201112
  5. OCELLA [Suspect]
     Dosage: UNK
     Dates: start: 2002, end: 201112
  6. GIANVI [Suspect]
     Dosage: UNK
     Dates: start: 2002, end: 201112

REACTIONS (2)
  - Pulmonary embolism [None]
  - Deep vein thrombosis [None]
